FAERS Safety Report 12857682 (Version 3)
Quarter: 2016Q4

REPORT INFORMATION
  Report Type: Spontaneous
  Country: US (occurrence: US)
  Receive Date: 20161018
  Receipt Date: 20161019
  Transmission Date: 20170207
  Serious: Yes (Other)
  Sender: FDA-Public Use
  Company Number: US-GLAXOSMITHKLINE-US2016150555

PATIENT
  Age: 43 Year
  Sex: Male

DRUGS (1)
  1. TRANSDERM SCOP [Suspect]
     Active Substance: SCOPOLAMINE
     Indication: NAUSEA
     Dosage: UNK
     Dates: start: 201406, end: 20160516

REACTIONS (28)
  - Paranoia [Unknown]
  - Suture insertion [Unknown]
  - Balance disorder [Unknown]
  - Incorrect drug administration duration [Unknown]
  - Condition aggravated [Unknown]
  - Delusion [Unknown]
  - Withdrawal syndrome [Unknown]
  - Memory impairment [Unknown]
  - Off label use [Unknown]
  - Anxiety [Unknown]
  - Confusional state [Unknown]
  - Hyperhidrosis [Unknown]
  - Depression [Unknown]
  - Fall [Unknown]
  - Nausea [Unknown]
  - Vertigo [Not Recovered/Not Resolved]
  - Adverse reaction [Unknown]
  - Movement disorder [Unknown]
  - Pruritus [Unknown]
  - Cold sweat [Unknown]
  - Dependence [Unknown]
  - Dizziness [Unknown]
  - Hypersomnia [Unknown]
  - Injury [Unknown]
  - Mania [Unknown]
  - Anger [Unknown]
  - Ill-defined disorder [Unknown]
  - Vomiting [Unknown]

NARRATIVE: CASE EVENT DATE: 2014
